FAERS Safety Report 25773109 (Version 2)
Quarter: 2025Q3

REPORT INFORMATION
  Report Type: Report from Study
  Country: US (occurrence: US)
  Receive Date: 20250908
  Receipt Date: 20250911
  Transmission Date: 20251020
  Serious: Yes (Disabling)
  Sender: GILEAD
  Company Number: US-GILEAD-2025-0727290

PATIENT
  Age: 75 Year
  Sex: Female

DRUGS (1)
  1. SELADELPAR [Suspect]
     Active Substance: SELADELPAR
     Indication: Product used for unknown indication
     Dosage: 10 MG, QD
     Route: 048

REACTIONS (1)
  - Dizziness [Unknown]

NARRATIVE: CASE EVENT DATE: 20250824
